FAERS Safety Report 9297344 (Version 2)
Quarter: 2013Q2

REPORT INFORMATION
  Report Type: Spontaneous
  Country: GB (occurrence: GB)
  Receive Date: 20130520
  Receipt Date: 20130603
  Transmission Date: 20140414
  Serious: Yes (Hospitalization, Other)
  Sender: FDA-Public Use
  Company Number: GB-RANBAXY-2013RR-69055

PATIENT
  Age: 55 Year
  Sex: Male

DRUGS (3)
  1. DICLOFENAC [Suspect]
     Indication: PRODUCT USED FOR UNKNOWN INDICATION
     Dosage: 218 TABLETS OF 50MG
     Route: 048
  2. DIHYDROCODEINE [Suspect]
     Indication: PRODUCT USED FOR UNKNOWN INDICATION
     Dosage: 80 TABLETS OG 60MG
     Route: 048
  3. PARACETAMOL [Suspect]
     Indication: PRODUCT USED FOR UNKNOWN INDICATION
     Dosage: 48 TABLETS OF PARACETAMOL 500MG
     Route: 048

REACTIONS (5)
  - Large intestine perforation [Recovering/Resolving]
  - Erosive duodenitis [Recovering/Resolving]
  - Oesophagitis [Recovering/Resolving]
  - Intentional overdose [Recovering/Resolving]
  - Haemoglobin decreased [None]
